FAERS Safety Report 6378719-5 (Version None)
Quarter: 2009Q3

REPORT INFORMATION
  Report Type: 
  Country: None (occurrence: None)
  Receive Date: 20090923
  Receipt Date: 20090914
  Transmission Date: 20100115
  Serious: Yes (Other)
  Sender: FDA-Public Use
  Company Number: 090280

PATIENT
  Age: 74 Year
  Sex: Male

DRUGS (5)
  1. HALFLYTELY [Suspect]
     Indication: COLONOSCOPY
     Dosage: 10MG/3 GLASSES, 1X, PO
     Route: 048
     Dates: start: 20090913
  2. XFORGE [Concomitant]
  3. WARFARIN SODIUM [Concomitant]
  4. VYTORIN [Concomitant]
  5. CARCEDILOL [Concomitant]

REACTIONS (8)
  - ABDOMINAL DISTENSION [None]
  - DIZZINESS [None]
  - DYSSTASIA [None]
  - ERYTHEMA [None]
  - HEADACHE [None]
  - HYPERSENSITIVITY [None]
  - RASH GENERALISED [None]
  - RASH PRURITIC [None]
